FAERS Safety Report 24955830 (Version 3)
Quarter: 2025Q1

REPORT INFORMATION
  Report Type: Spontaneous
  Country: US (occurrence: US)
  Receive Date: 20250211
  Receipt Date: 20250314
  Transmission Date: 20250409
  Serious: No
  Sender: PFIZER
  Company Number: US-PFIZER INC-PV202500013719

PATIENT
  Age: 5 Year
  Sex: Male
  Weight: 21.6 kg

DRUGS (2)
  1. GENOTROPIN [Suspect]
     Active Substance: SOMATROPIN
     Indication: Short stature
     Dosage: 1.2 MG/DAY 7 DAYS/WEEK, (DOSE IN INCREMENTS OF 0.2 MG, PEN NEEDLE GAUGE: 31)
  2. GENOTROPIN [Suspect]
     Active Substance: SOMATROPIN
     Indication: Noonan syndrome

REACTIONS (2)
  - Injection site erythema [Recovered/Resolved]
  - Injection site pain [Unknown]
